FAERS Safety Report 5677608 (Version 2)
Quarter: 2014Q4

REPORT INFORMATION
  Report Type: Spontaneous
  Country: US (occurrence: US)
  Receive Date: 20041119
  Receipt Date: 20141222
  Transmission Date: 20150529
  Serious: No
  Sender: FDA-Public Use
  Company Number: US-GLAXOSMITHKLINE-A0520724A

PATIENT

DRUGS (5)
  1. AVODART [Suspect]
     Active Substance: DUTASTERIDE
     Indication: BENIGN PROSTATIC HYPERPLASIA
     Dosage: AS OF 16 SEPTEMBER 2014, 1 CAP DAILY, DOSE UNSPECIFIED SINCE 2008
     Route: 048
  2. TENORMIN [Concomitant]
     Active Substance: ATENOLOL
  3. NORVASC [Concomitant]
     Active Substance: AMLODIPINE BESYLATE
  4. BLOOD PRESSURE MEDICATION [Concomitant]
     Active Substance: UNSPECIFIED INGREDIENT
  5. ZOCOR [Concomitant]
     Active Substance: SIMVASTATIN

REACTIONS (7)
  - Micturition urgency [Recovering/Resolving]
  - Breast enlargement [Unknown]
  - Gynaecomastia [Unknown]
  - Breast tenderness [Unknown]
  - Mammogram abnormal [Unknown]
  - Chest pain [Recovering/Resolving]
  - Fatigue [Unknown]

NARRATIVE: CASE EVENT DATE: 20040812
